FAERS Safety Report 7339596-9 (Version None)
Quarter: 2011Q1

REPORT INFORMATION
  Report Type: 
  Country: None (occurrence: None)
  Receive Date: 20110308
  Receipt Date: 20110303
  Transmission Date: 20110831
  Serious: Yes (Hospitalization)
  Sender: FDA-Public Use
  Company Number: US-B.I. PHARMACEUTICALS,INC./RIDGEFIELD-2011-BP-02173BP

PATIENT
  Age: 72 Year
  Sex: Female

DRUGS (7)
  1. SERTRALINE HYDROCHLORIDE [Concomitant]
  2. VICODIN [Concomitant]
  3. OMEPRAZOLE [Concomitant]
  4. PRADAXA [Suspect]
     Indication: ATRIAL FIBRILLATION
     Dosage: 300 MG
     Dates: end: 20110201
  5. NSAIDS [Suspect]
  6. DICLOFENAC [Concomitant]
  7. DIOVAN HCT [Concomitant]

REACTIONS (2)
  - GASTRIC HAEMORRHAGE [None]
  - GASTROINTESTINAL HAEMORRHAGE [None]
